FAERS Safety Report 12426647 (Version 1)
Quarter: 2016Q2

REPORT INFORMATION
  Report Type: Spontaneous
  Country: CA (occurrence: CA)
  Receive Date: 20160601
  Receipt Date: 20160601
  Transmission Date: 20160815
  Serious: Yes (Other)
  Sender: FDA-Public Use
  Company Number: CA-SA-2016SA103202

PATIENT
  Age: 71 Year
  Sex: Female

DRUGS (14)
  1. ARAVA [Suspect]
     Active Substance: LEFLUNOMIDE
     Route: 065
  2. ENBREL [Suspect]
     Active Substance: ETANERCEPT
     Indication: RHEUMATOID ARTHRITIS
     Route: 065
  3. CELLCEPT [Suspect]
     Active Substance: MYCOPHENOLATE MOFETIL\MYCOPHENOLATE MOFETIL HYDROCHLORIDE
     Route: 065
  4. ACTEMRA [Suspect]
     Active Substance: TOCILIZUMAB
     Route: 065
  5. REMICADE [Suspect]
     Active Substance: INFLIXIMAB
     Route: 065
  6. PLAQUENIL [Suspect]
     Active Substance: HYDROXYCHLOROQUINE SULFATE
     Route: 065
  7. METHOTREXATE SODIUM. [Suspect]
     Active Substance: METHOTREXATE SODIUM
     Indication: RHEUMATOID ARTHRITIS
     Route: 065
  8. SULFASALAZINE. [Suspect]
     Active Substance: SULFASALAZINE
     Indication: RHEUMATOID ARTHRITIS
     Route: 065
  9. GOLD [Suspect]
     Active Substance: GOLD
     Route: 065
  10. LYRICA [Suspect]
     Active Substance: PREGABALIN
     Route: 048
  11. ORENCIA [Suspect]
     Active Substance: ABATACEPT
     Route: 065
  12. SIMPONI [Suspect]
     Active Substance: GOLIMUMAB
     Route: 065
  13. RITUXAN [Suspect]
     Active Substance: RITUXIMAB
     Route: 065
  14. HUMIRA [Suspect]
     Active Substance: ADALIMUMAB
     Route: 065

REACTIONS (8)
  - Treatment failure [Unknown]
  - Rheumatoid arthritis [Unknown]
  - Psoriatic arthropathy [Unknown]
  - Local swelling [Unknown]
  - Sciatica [Unknown]
  - Sinusitis [Unknown]
  - Drug intolerance [Unknown]
  - Joint swelling [Unknown]

NARRATIVE: CASE EVENT DATE: 201604
